FAERS Safety Report 4605013-2 (Version None)
Quarter: 2005Q1

REPORT INFORMATION
  Report Type: 
  Country: None (occurrence: None)
  Receive Date: 20050311
  Receipt Date: 20050225
  Transmission Date: 20050727
  Serious: Yes (Hospitalization)
  Sender: FDA-Public Use
  Company Number: DE-JNJFOC-20050300056

PATIENT
  Sex: Female
  Weight: 80 kg

DRUGS (2)
  1. RISPERIDONE [Suspect]
     Indication: SCHIZOPHRENIA
     Route: 049
  2. FLUOXETINE [Suspect]

REACTIONS (2)
  - HALLUCINATION, AUDITORY [None]
  - INJURY [None]
